FAERS Safety Report 5277355-1 (Version None)
Quarter: 2007Q1

REPORT INFORMATION
  Report Type: 
  Country: None (occurrence: None)
  Receive Date: 20061213
  Receipt Date: 20051101
  Transmission Date: 20070707
  Serious: No
  Sender: FDA-Public Use
  Company Number: 2005UW16583

PATIENT
  Age: 50 Year
  Sex: Male

DRUGS (3)
  1. SEROQUEL [Suspect]
     Dosage: 500 MG PO
     Route: 048
  2. MELLARIL [Concomitant]
  3. RISPERDAL [Concomitant]

REACTIONS (1)
  - TARDIVE DYSKINESIA [None]
